FAERS Safety Report 7994828 (Version 2)
Quarter: 2018Q4

REPORT INFORMATION
  Report Type: Spontaneous
  Country: ES (occurrence: ES)
  Receive Date: 20110616
  Receipt Date: 20181226
  Transmission Date: 20190205
  Serious: Yes (Other)
  Sender: FDA-Public Use
  Company Number: ES-PFIZER INC-2011129590

PATIENT
  Age: 70 Year
  Sex: Female

DRUGS (5)
  1. PARACETAMOL [Suspect]
     Active Substance: ACETAMINOPHEN
     Indication: BACK PAIN
     Dosage: UNK, DAILY
     Route: 048
     Dates: start: 20110303, end: 20110324
  2. LYRICA [Suspect]
     Active Substance: PREGABALIN
     Indication: BACK PAIN
     Dosage: 75 MG, 2X/DAY
     Route: 048
     Dates: start: 20110303, end: 20110324
  3. ADIRO [Concomitant]
     Active Substance: ASPIRIN
     Indication: BACK PAIN
     Dosage: 100 MG, DAILY
     Route: 048
     Dates: end: 20110324
  4. METAMIZOLE [Suspect]
     Active Substance: METAMIZOLE
     Indication: BACK PAIN
     Dosage: UNK, 3X/DAY
     Route: 048
     Dates: start: 20110303, end: 20110324
  5. GABAPENTIN. [Concomitant]
     Active Substance: GABAPENTIN
     Indication: BACK PAIN
     Dosage: UNK
     Dates: start: 20110303

REACTIONS (2)
  - Hepatitis cholestatic [Recovering/Resolving]
  - Transaminases increased [Recovering/Resolving]

NARRATIVE: CASE EVENT DATE: 20110321
